FAERS Safety Report 9264928 (Version 2)
Quarter: 2014Q1

REPORT INFORMATION
  Report Type: Spontaneous
  Country: US (occurrence: US)
  Receive Date: 20130501
  Receipt Date: 20140116
  Transmission Date: 20141002
  Serious: Yes (Hospitalization, Other)
  Sender: FDA-Public Use
  Company Number: US-BAYER-2013-051967

PATIENT
  Age: 28 Year
  Sex: Female

DRUGS (16)
  1. YAZ [Suspect]
  2. YASMIN [Suspect]
  3. DILAUDID [Concomitant]
  4. TORADOL [Concomitant]
  5. DOXYCYCLINE [Concomitant]
  6. ADDERALL [Concomitant]
  7. CYMBALTA [Concomitant]
  8. FIORINAL WITH CODEINE [Concomitant]
  9. ASPIRIN [Concomitant]
  10. PERCOCET [Concomitant]
  11. ZOFRAN [Concomitant]
     Dosage: 4 MG, UNK
     Route: 042
     Dates: start: 20080729
  12. PEPCID [Concomitant]
     Dosage: 20 MG, UNK
     Dates: start: 20080730
  13. AMBIEN [Concomitant]
     Dosage: 5 MG, HS
     Dates: start: 20080730
  14. VALIUM [Concomitant]
  15. ATIVAN [Concomitant]
  16. PHENERGAN [Concomitant]

REACTIONS (3)
  - Thrombophlebitis superficial [None]
  - Jugular vein thrombosis [None]
  - Deep vein thrombosis [None]
